FAERS Safety Report 6025944-9 (Version None)
Quarter: 2008Q4

REPORT INFORMATION
  Report Type: 
  Country: None (occurrence: None)
  Receive Date: 20081230
  Receipt Date: 20081215
  Transmission Date: 20090506
  Serious: Yes (Hospitalization)
  Sender: FDA-Public Use
  Company Number: KV200801130

PATIENT
  Age: 46 Year
  Sex: Female
  Weight: 68 kg

DRUGS (4)
  1. MORPHINE SULFATE [Suspect]
     Indication: COMPLEX REGIONAL PAIN SYNDROME
     Dosage: 15 MG, Q8HRS, ORAL
     Route: 048
     Dates: start: 20060101
  2. MORPHINE SULFATE [Suspect]
     Indication: BREAKTHROUGH PAIN
     Dosage: 15 MG, BID PRN, ORAL
     Route: 048
     Dates: start: 20060101
  3. OTHER MEDICATIONS [Concomitant]
  4. UNSPECIFIED INHALER [Concomitant]

REACTIONS (6)
  - COMPLEX REGIONAL PAIN SYNDROME [None]
  - CONDITION AGGRAVATED [None]
  - DYSPNOEA [None]
  - HEART RATE INCREASED [None]
  - PANIC ATTACK [None]
  - PRODUCT QUALITY ISSUE [None]
